FAERS Safety Report 18928394 (Version 32)
Quarter: 2025Q3

REPORT INFORMATION
  Report Type: Report from Study
  Country: US (occurrence: US)
  Receive Date: 20210223
  Receipt Date: 20250903
  Transmission Date: 20251021
  Serious: Yes (Hospitalization, Other)
  Sender: TAKEDA
  Company Number: US-TAKEDA-2021TUS009441

PATIENT
  Age: 83 Year
  Sex: Female
  Weight: 60 kg

DRUGS (24)
  1. HUMAN IMMUNOGLOBULIN G [Suspect]
     Active Substance: HUMAN IMMUNOGLOBULIN G
     Indication: Immunodeficiency common variable
     Dosage: 5 GRAM, 1/WEEK
     Dates: start: 20210320
  2. HUMAN IMMUNOGLOBULIN G [Suspect]
     Active Substance: HUMAN IMMUNOGLOBULIN G
     Indication: Primary immunodeficiency syndrome
     Dosage: 6 GRAM, 1/WEEK
  3. HUMAN IMMUNOGLOBULIN G [Suspect]
     Active Substance: HUMAN IMMUNOGLOBULIN G
     Indication: Alpha-1 antitrypsin deficiency
  4. GAMMAGARD LIQUID [Suspect]
     Active Substance: HUMAN IMMUNOGLOBULIN G
     Indication: Primary immunodeficiency syndrome
  5. GAMMAGARD LIQUID [Suspect]
     Active Substance: HUMAN IMMUNOGLOBULIN G
  6. COVID-19 VACCINE NOS [Suspect]
     Active Substance: COVID-19 VACCINE
     Indication: COVID-19 immunisation
  7. ACETAMINOPHEN [Concomitant]
     Active Substance: ACETAMINOPHEN
  8. DIPHENHYDRAMINE [Concomitant]
     Active Substance: DIPHENHYDRAMINE
  9. EPINEPHRINE [Concomitant]
     Active Substance: EPINEPHRINE
  10. Lmx [Concomitant]
  11. SYNTHROID [Concomitant]
     Active Substance: LEVOTHYROXINE SODIUM
  12. COENZYME Q10 [Concomitant]
     Active Substance: DIETARY SUPPLEMENT\UBIDECARENONE
  13. FLUTICASONE [Concomitant]
     Active Substance: FLUTICASONE
  14. FENOFIBRATE [Concomitant]
     Active Substance: FENOFIBRATE
  15. SYMBICORT [Concomitant]
     Active Substance: BUDESONIDE\FORMOTEROL FUMARATE DIHYDRATE
  16. FARXIGA [Concomitant]
     Active Substance: DAPAGLIFLOZIN PROPANEDIOL
  17. ROPINIROLE [Concomitant]
     Active Substance: ROPINIROLE
  18. VITAMIN B COMPLEX [Concomitant]
     Active Substance: CYANOCOBALAMIN\DEXPANTHENOL\NIACINAMIDE\PYRIDOXINE HYDROCHLORIDE\RIBOFLAVIN 5^-PHOSPHATE SODIUM\THIA
  19. VITAMIN D3 [Concomitant]
     Active Substance: CHOLECALCIFEROL
  20. GLIMEPIRIDE [Concomitant]
     Active Substance: GLIMEPIRIDE
  21. OCUVITE [Concomitant]
     Active Substance: VITAMINS
  22. TRIAMTERENE AND HYDROCHLOROTHIAZIDE [Concomitant]
     Active Substance: HYDROCHLOROTHIAZIDE\TRIAMTERENE
  23. PREMARIN [Concomitant]
     Active Substance: ESTROGENS, CONJUGATED
  24. INSULIN NOS [Concomitant]
     Active Substance: INSULIN NOS

REACTIONS (33)
  - Parkinson^s disease [Unknown]
  - Pneumonia [Unknown]
  - Diabetes mellitus [Unknown]
  - Cerebrovascular accident [Unknown]
  - Weight decreased [Unknown]
  - Joint swelling [Unknown]
  - Bronchitis [Unknown]
  - Blood immunoglobulin G decreased [Unknown]
  - Seasonal allergy [Unknown]
  - COVID-19 [Unknown]
  - Blood immunoglobulin G abnormal [Not Recovered/Not Resolved]
  - Insurance issue [Unknown]
  - Faeces discoloured [Unknown]
  - Gastrointestinal disorder [Unknown]
  - Immunoglobulins abnormal [Unknown]
  - Inappropriate schedule of product administration [Unknown]
  - Joint injury [Unknown]
  - Localised infection [Unknown]
  - Immunoglobulins decreased [Unknown]
  - Product dose omission issue [Unknown]
  - Musculoskeletal discomfort [Unknown]
  - Limb injury [Unknown]
  - Vein disorder [Unknown]
  - Respiratory tract infection [Unknown]
  - Food poisoning [Unknown]
  - Blood magnesium decreased [Unknown]
  - Sinusitis [Unknown]
  - Influenza [Unknown]
  - Infusion site discomfort [Unknown]
  - Diarrhoea [Unknown]
  - Fatigue [Unknown]
  - Muscular weakness [Unknown]
  - Immunisation reaction [Unknown]

NARRATIVE: CASE EVENT DATE: 20240417
